FAERS Safety Report 22875395 (Version 3)
Quarter: 2024Q3

REPORT INFORMATION
  Report Type: Spontaneous
  Country: JP (occurrence: JP)
  Receive Date: 20230829
  Receipt Date: 20240723
  Transmission Date: 20241016
  Serious: Yes (Other)
  Sender: STRIDES
  Company Number: None

PATIENT
  Age: 8 Month
  Sex: Male

DRUGS (12)
  1. CYCLOSPORINE [Suspect]
     Active Substance: CYCLOSPORINE
     Indication: Glomerulonephritis membranous
     Dosage: UNK (TAPERED)
     Route: 065
  2. PREDNISOLONE [Suspect]
     Active Substance: PREDNISOLONE
     Indication: Nephrotic syndrome
     Dosage: 2 MILLIGRAM/KILOGRAM PER DAY
     Route: 065
  3. PREDNISOLONE [Suspect]
     Active Substance: PREDNISOLONE
     Indication: Glomerulonephritis membranous
     Dosage: UNK (TAPERED)
     Route: 065
  4. FUROSEMIDE [Suspect]
     Active Substance: FUROSEMIDE
     Indication: Nephrotic syndrome
     Dosage: UNK
     Route: 065
  5. FUROSEMIDE [Suspect]
     Active Substance: FUROSEMIDE
     Indication: Hypertension
  6. MYCOPHENOLATE MOFETIL [Suspect]
     Active Substance: MYCOPHENOLATE MOFETIL
     Indication: Glomerulonephritis membranous
     Dosage: PULSE THERAPY
     Route: 065
  7. MYCOPHENOLATE MOFETIL [Suspect]
     Active Substance: MYCOPHENOLATE MOFETIL
     Indication: Proteinuria
  8. NICARDIPINE [Suspect]
     Active Substance: NICARDIPINE
     Indication: Nephrotic syndrome
     Dosage: UNK
     Route: 065
  9. NICARDIPINE [Suspect]
     Active Substance: NICARDIPINE
     Indication: Hypertension
  10. RITUXIMAB [Suspect]
     Active Substance: RITUXIMAB
     Indication: Product used for unknown indication
     Dosage: 375 MILLIGRAM/SQ. METER
     Route: 065
  11. METHYLPREDNISOLONE [Suspect]
     Active Substance: METHYLPREDNISOLONE
     Indication: Glomerulonephritis membranous
     Dosage: UNK (PULSE THERAPY)
     Route: 065
  12. MIZORIBINE [Concomitant]
     Active Substance: MIZORIBINE
     Indication: Glomerulonephritis membranous
     Dosage: UNK
     Route: 065

REACTIONS (6)
  - Proteinuria [Recovered/Resolved]
  - Toxicity to various agents [Unknown]
  - Therapy non-responder [Unknown]
  - Disease recurrence [Unknown]
  - Upper respiratory tract infection [Unknown]
  - Off label use [Unknown]
